FAERS Safety Report 5394234-X (Version None)
Quarter: 2007Q3

REPORT INFORMATION
  Report Type: 
  Country: None (occurrence: None)
  Receive Date: 20070723
  Receipt Date: 20070504
  Transmission Date: 20080115
  Serious: No
  Sender: FDA-Public Use
  Company Number: A0650319A

PATIENT
  Age: 64 Year
  Sex: Female

DRUGS (3)
  1. AVANDIA [Suspect]
     Route: 048
     Dates: end: 20060101
  2. GLYBURIDE [Suspect]
     Dosage: 4MG THREE TIMES PER DAY
     Route: 048
     Dates: end: 20061227
  3. BYETTA [Suspect]
     Dosage: 5MCG TWICE PER DAY
     Route: 058
     Dates: start: 20061101

REACTIONS (4)
  - BLOOD GLUCOSE DECREASED [None]
  - SKIN TIGHTNESS [None]
  - SWELLING [None]
  - WEIGHT INCREASED [None]
